FAERS Safety Report 5199910-X (Version None)
Quarter: 2007Q1

REPORT INFORMATION
  Report Type: 
  Country: None (occurrence: None)
  Receive Date: 20070105
  Receipt Date: 20070102
  Transmission Date: 20070707
  Serious: Yes (Hospitalization)
  Sender: FDA-Public Use
  Company Number: IT-ROCHE-476900

PATIENT
  Age: 4 Year
  Sex: Male

DRUGS (1)
  1. ROCEPHIN [Suspect]
     Indication: TONSILLITIS
     Dosage: FORM REPORTED AS ^VIAL UNK^.
     Route: 030
     Dates: start: 20061214, end: 20061214

REACTIONS (2)
  - URTICARIA [None]
  - URTICARIA GENERALISED [None]
